FAERS Safety Report 6861325-3 (Version None)
Quarter: 2010Q3

REPORT INFORMATION
  Report Type: 
  Country: None (occurrence: None)
  Receive Date: 20100715
  Receipt Date: 20100115
  Transmission Date: 20110219
  Serious: No
  Sender: FDA-Public Use
  Company Number: 008803

PATIENT
  Age: 88 Year
  Sex: Male

DRUGS (1)
  1. CILOSTAZOL [Suspect]
     Dosage: 100 MG DAILY DOSE, ORAL
     Route: 048
     Dates: start: 20090101

REACTIONS (2)
  - ATRIAL FIBRILLATION [None]
  - HALLUCINATION [None]
